FAERS Safety Report 15158269 (Version 4)
Quarter: 2018Q4

REPORT INFORMATION
  Report Type: Report from Study
  Country: DE (occurrence: DE)
  Receive Date: 20180718
  Receipt Date: 20181225
  Transmission Date: 20190204
  Serious: Yes (Hospitalization, Other)
  Sender: FDA-Public Use
  Company Number: DE-BRISTOL-MYERS SQUIBB COMPANY-BMS-2018-065820

PATIENT
  Age: 73 Year
  Sex: Male
  Weight: 62 kg

DRUGS (3)
  1. BLINDED IPILIMUMAB [Suspect]
     Active Substance: IPILIMUMAB
     Indication: MALIGNANT MELANOMA
     Dosage: UNK
     Route: 065
     Dates: start: 20180509, end: 20180704
  2. BLINDED NIVOLUMAB [Suspect]
     Active Substance: NIVOLUMAB
     Indication: MALIGNANT MELANOMA
     Dosage: UNK
     Route: 065
     Dates: start: 20180509, end: 20180704
  3. BLINDED PLACEBO [Suspect]
     Active Substance: INVESTIGATIONAL PRODUCT
     Indication: MALIGNANT MELANOMA
     Dosage: UNK
     Route: 065
     Dates: start: 20180509, end: 20180704

REACTIONS (5)
  - Autoimmune neuropathy [Unknown]
  - Pneumonia [Unknown]
  - Pneumonitis [Unknown]
  - Alanine aminotransferase increased [Not Recovered/Not Resolved]
  - Autoimmune hepatitis [Recovered/Resolved]

NARRATIVE: CASE EVENT DATE: 20180712
